FAERS Safety Report 13020161 (Version 1)
Quarter: 2016Q4

REPORT INFORMATION
  Report Type: Spontaneous
  Country: IT (occurrence: IT)
  Receive Date: 20161212
  Receipt Date: 20161212
  Transmission Date: 20170207
  Serious: Yes (Other)
  Sender: FDA-Public Use
  Company Number: IT-WARNER CHILCOTT, LLC-1060703

PATIENT
  Age: 80 Year
  Sex: Female

DRUGS (7)
  1. LANSOX [Suspect]
     Active Substance: LANSOPRAZOLE
  2. SIMESTAT [Suspect]
     Active Substance: ROSUVASTATIN CALCIUM
  3. CARTEOLOL HYDROCHLORIDE. [Suspect]
     Active Substance: CARTEOLOL HYDROCHLORIDE
  4. LETROZOLE. [Suspect]
     Active Substance: LETROZOLE
  5. PRITOR [Suspect]
     Active Substance: TELMISARTAN
  6. DIBASE [Suspect]
     Active Substance: CHOLECALCIFEROL
  7. ACTONEL [Suspect]
     Active Substance: RISEDRONATE SODIUM
     Route: 048

REACTIONS (3)
  - Asthenia [Unknown]
  - Hypertension [Unknown]
  - Malaise [Unknown]

NARRATIVE: CASE EVENT DATE: 20160413
